FAERS Safety Report 14641404 (Version 1)
Quarter: 2018Q1

REPORT INFORMATION
  Report Type: Spontaneous
  Country: IT (occurrence: IT)
  Receive Date: 20180315
  Receipt Date: 20180315
  Transmission Date: 20180509
  Serious: Yes (Hospitalization)
  Sender: FDA-Public Use
  Company Number: IT-ELI_LILLY_AND_COMPANY-IT201803002141

PATIENT
  Age: 70 Year
  Sex: Female

DRUGS (4)
  1. OLANZAPINE. [Suspect]
     Active Substance: OLANZAPINE
     Indication: DRUG ABUSE
     Dosage: 350 MG, SINGLE
     Route: 048
  2. VENLAFAXINE HYDROCHLORIDE. [Suspect]
     Active Substance: VENLAFAXINE HYDROCHLORIDE
     Indication: DRUG ABUSE
     Dosage: 3150 MG, SINGLE
     Route: 048
  3. TACHIPIRINA [Suspect]
     Active Substance: ACETAMINOPHEN
     Indication: DRUG ABUSE
     Dosage: 10 DF, DAILY
     Route: 048
  4. ATARAX [Suspect]
     Active Substance: HYDROXYZINE HYDROCHLORIDE
     Indication: DRUG ABUSE
     Dosage: 40 MG, SINGLE
     Route: 048

REACTIONS (4)
  - Drug abuse [Unknown]
  - Hyponatraemic syndrome [Unknown]
  - Intentional overdose [Unknown]
  - Poisoning [Unknown]

NARRATIVE: CASE EVENT DATE: 20171217
